FAERS Safety Report 9011866 (Version 1)
Quarter: 2013Q1

REPORT INFORMATION
  Report Type: Spontaneous
  Country: US (occurrence: US)
  Receive Date: 20130113
  Receipt Date: 20130113
  Transmission Date: 20140127
  Serious: Yes (Other)
  Sender: FDA-Public Use
  Company Number: US-009507513-0901USA02242

PATIENT
  Age: 10 Year
  Sex: Male
  Weight: 56.7 kg

DRUGS (4)
  1. SINGULAIR [Suspect]
     Indication: ASTHMA
     Dosage: 10 MG, QD
     Route: 048
     Dates: start: 20071101, end: 20080501
  2. SINGULAIR [Suspect]
     Indication: SEASONAL ALLERGY
  3. SINGULAIR [Suspect]
     Indication: ASTHMA
     Dosage: 5 MG, UNK
     Route: 048
  4. SINGULAIR [Suspect]
     Indication: SEASONAL ALLERGY

REACTIONS (14)
  - Abnormal behaviour [Recovered/Resolved]
  - Aggression [Recovered/Resolved]
  - Crying [Recovered/Resolved]
  - Depressed level of consciousness [Recovered/Resolved]
  - Educational problem [Recovered/Resolved]
  - Mood altered [Recovered/Resolved]
  - Insomnia [Recovered/Resolved]
  - Mood swings [Recovered/Resolved]
  - Obsessive thoughts [Recovered/Resolved]
  - Pain [Recovered/Resolved]
  - Personality change [Recovered/Resolved]
  - Somnolence [Recovered/Resolved]
  - Thinking abnormal [Recovered/Resolved]
  - Violence-related symptom [Recovered/Resolved]
